FAERS Safety Report 7219403-5 (Version None)
Quarter: 2011Q1

REPORT INFORMATION
  Report Type: 
  Country: None (occurrence: None)
  Receive Date: 20110111
  Receipt Date: 20110105
  Transmission Date: 20110831
  Serious: Yes (Hospitalization, Other)
  Sender: FDA-Public Use
  Company Number: US-PFIZER INC-2011003011

PATIENT
  Sex: Female
  Weight: 70.3 kg

DRUGS (1)
  1. PREMPRO [Suspect]
     Indication: MENOPAUSAL SYMPTOMS
     Dosage: .625 MG, 1X/DAY
     Route: 048

REACTIONS (3)
  - HOT FLUSH [None]
  - GALLBLADDER DISORDER [None]
  - DRUG DOSE OMISSION [None]
